FAERS Safety Report 16410924 (Version 2)
Quarter: 2019Q2

REPORT INFORMATION
  Report Type: Report from Study
  Country: None (occurrence: GB)
  Receive Date: 20190610
  Receipt Date: 20190611
  Transmission Date: 20190711
  Serious: Yes (Life-Threatening, Hospitalization)
  Sender: FDA-Public Use
  Company Number: GB-ABBVIE-19K-167-2814254-00

PATIENT
  Age: 19 Year
  Sex: Male
  Weight: 58.4 kg

DRUGS (1)
  1. HUMIRA [Suspect]
     Active Substance: ADALIMUMAB
     Indication: PSORIASIS
     Route: 058
     Dates: start: 20150630

REACTIONS (5)
  - Stress [Recovered/Resolved with Sequelae]
  - Suicide attempt [Recovered/Resolved with Sequelae]
  - Hospitalisation [Recovered/Resolved with Sequelae]
  - Alcohol poisoning [Recovered/Resolved with Sequelae]
  - Affective disorder [Recovered/Resolved with Sequelae]

NARRATIVE: CASE EVENT DATE: 20180508
